FAERS Safety Report 15202865 (Version 1)
Quarter: 2018Q3

REPORT INFORMATION
  Report Type: Spontaneous
  Country: EG (occurrence: EG)
  Receive Date: 20180726
  Receipt Date: 20180726
  Transmission Date: 20181010
  Serious: Yes (Life-Threatening, Hospitalization, Other)
  Sender: FDA-Public Use
  Company Number: PHHY2018EG052106

PATIENT
  Age: 45 Year
  Sex: Male
  Weight: 68 kg

DRUGS (1)
  1. CEFTRIAXONE SANDOZ [Suspect]
     Active Substance: CEFTRIAXONE
     Indication: GASTROENTERITIS
     Dosage: 1 G, UNK
     Route: 042

REACTIONS (8)
  - Hypersensitivity [Unknown]
  - Wheezing [Not Recovered/Not Resolved]
  - Bronchial hyperreactivity [Unknown]
  - Arrhythmia [Unknown]
  - Shock [Not Recovered/Not Resolved]
  - Syncope [Not Recovered/Not Resolved]
  - Palpitations [Unknown]
  - Dermatitis allergic [Not Recovered/Not Resolved]

NARRATIVE: CASE EVENT DATE: 20180620
